FAERS Safety Report 8444467-0 (Version None)
Quarter: 2012Q2

REPORT INFORMATION
  Report Type: 
  Country: None (occurrence: None)
  Receive Date: 20120618
  Receipt Date: 20120611
  Transmission Date: 20120825
  Serious: Yes (Other)
  Sender: FDA-Public Use
  Company Number: US-PFIZER INC-2012081764

PATIENT
  Sex: Female
  Weight: 78.005 kg

DRUGS (15)
  1. MAGNESIUM [Concomitant]
     Dosage: UNK, 2X/DAY
  2. ACETYLSALICYLIC ACID [Concomitant]
     Dosage: 81 MG, UNK
  3. ZOVIRAX [Concomitant]
     Dosage: UNK
  4. CALCIUM [Concomitant]
     Dosage: UNK
  5. TOVIAZ [Concomitant]
     Dosage: UNK
  6. LINAGLIPTIN [Concomitant]
     Dosage: UNK
     Route: 048
  7. ZOLOFT [Concomitant]
     Dosage: UNK
  8. VESICARE [Concomitant]
     Dosage: UNK
  9. COREG [Concomitant]
     Dosage: UNK
  10. MICROZIDE [Concomitant]
     Dosage: UNK
  11. PROTONIX [Concomitant]
     Dosage: UNK, 1X/DAY
  12. DIFLUCAN [Suspect]
     Dosage: 200 MG, UNK
     Route: 048
  13. VITAMIN B-12 [Concomitant]
     Dosage: UNK
  14. FLEXERIL [Concomitant]
     Indication: MUSCLE SPASMS
     Dosage: UNK
  15. PRADAXA [Concomitant]
     Dosage: 75 MG, 2X/DAY

REACTIONS (3)
  - HIP FRACTURE [None]
  - FALL [None]
  - CEREBROVASCULAR ACCIDENT [None]
